FAERS Safety Report 8370839-9 (Version None)
Quarter: 2012Q2

REPORT INFORMATION
  Report Type: 
  Country: None (occurrence: None)
  Receive Date: 20120518
  Receipt Date: 20110701
  Transmission Date: 20120825
  Serious: No
  Sender: FDA-Public Use
  Company Number: US-ASTRAZENECA-2011SE38934

PATIENT
  Sex: Female

DRUGS (2)
  1. PRILOSEC OTC [Suspect]
     Indication: ERUCTATION
     Route: 048
     Dates: start: 20110608
  2. MIRALAX [Suspect]

REACTIONS (4)
  - CHILLS [None]
  - HYPERSENSITIVITY [None]
  - CONSTIPATION [None]
  - PYREXIA [None]
